FAERS Safety Report 7388081-7 (Version None)
Quarter: 2011Q1

REPORT INFORMATION
  Report Type: 
  Country: None (occurrence: None)
  Receive Date: 20110324
  Receipt Date: 20110314
  Transmission Date: 20110831
  Serious: Yes (Hospitalization)
  Sender: FDA-Public Use
  Company Number: 2011MA002395

PATIENT
  Age: 32 Year
  Sex: Female
  Weight: 44 kg

DRUGS (2)
  1. FEVERALL [Suspect]
     Dosage: 4 GM QD, PO
     Route: 048
  2. MULTI-VITAMINS [Suspect]

REACTIONS (4)
  - AGITATION [None]
  - DRUG LEVEL INCREASED [None]
  - ACUTE HEPATIC FAILURE [None]
  - NAUSEA [None]
